FAERS Safety Report 7932685-7 (Version None)
Quarter: 2011Q4

REPORT INFORMATION
  Report Type: 
  Country: None (occurrence: None)
  Receive Date: 20111122
  Receipt Date: 20111116
  Transmission Date: 20120403
  Serious: Yes (Hospitalization)
  Sender: FDA-Public Use
  Company Number: US-AMGEN-USASP2011060779

PATIENT
  Sex: Male
  Weight: 2.721 kg

DRUGS (1)
  1. NPLATE [Suspect]
     Dosage: UNK
     Route: 064
     Dates: start: 20100409, end: 20101111

REACTIONS (2)
  - PREMATURE BABY [None]
  - ADVERSE EVENT [None]
